FAERS Safety Report 6337980-3 (Version None)
Quarter: 2009Q3

REPORT INFORMATION
  Report Type: 
  Country: None (occurrence: None)
  Receive Date: 20090902
  Receipt Date: 20090828
  Transmission Date: 20100115
  Serious: Yes (Life-Threatening, Other)
  Sender: FDA-Public Use
  Company Number: US-MERCK-0907USA00014

PATIENT
  Age: 57 Year
  Sex: Female
  Weight: 67 kg

DRUGS (9)
  1. JANUVIA [Suspect]
     Indication: TYPE 2 DIABETES MELLITUS
     Route: 048
     Dates: start: 20090224, end: 20090421
  2. METFORMIN [Concomitant]
     Route: 065
  3. CARVEDILOL [Concomitant]
     Route: 048
  4. GABAPENTIN [Concomitant]
     Route: 048
  5. FOSAMAX [Concomitant]
     Route: 048
  6. DIGOXIN [Concomitant]
     Route: 048
  7. GLYBURIDE AND METFORMIN HYDROCHLORIDE [Concomitant]
     Route: 048
  8. GEMFIBROZIL [Concomitant]
     Route: 048
  9. DURAGESIC-100 [Concomitant]
     Route: 061

REACTIONS (2)
  - DEPRESSED LEVEL OF CONSCIOUSNESS [None]
  - HYPOGLYCAEMIA [None]
